FAERS Safety Report 7531292-8 (Version None)
Quarter: 2011Q2

REPORT INFORMATION
  Report Type: 
  Country: None (occurrence: None)
  Receive Date: 20110608
  Receipt Date: 20110526
  Transmission Date: 20111010
  Serious: Yes (Hospitalization)
  Sender: FDA-Public Use
  Company Number: IT-BAYER-2011-045166

PATIENT
  Age: 72 Year
  Sex: Male

DRUGS (6)
  1. PRADIF [Concomitant]
     Dosage: 04 MG, UNK
  2. SEQUACOR [Concomitant]
  3. NEXAVAR [Suspect]
     Indication: HEPATIC NEOPLASM MALIGNANT NON-RESECTABLE
     Dosage: 400 MG, BID
     Route: 048
     Dates: start: 20110404, end: 20110412
  4. DIURESIX [Concomitant]
  5. GLIBOMET [Concomitant]
  6. LYRICA [Concomitant]

REACTIONS (1)
  - HEPATIC CIRRHOSIS [None]
